FAERS Safety Report 4291321-4 (Version None)
Quarter: 2004Q1

REPORT INFORMATION
  Report Type: 
  Country: None (occurrence: None)
  Receive Date: 20040211
  Receipt Date: 20031204
  Transmission Date: 20041129
  Serious: No
  Sender: FDA-Public Use
  Company Number: US-GLAXOSMITHKLINE-A0442597A

PATIENT
  Sex: Female

DRUGS (3)
  1. PAXIL [Suspect]
     Route: 048
  2. WELLBUTRIN SR [Suspect]
     Route: 048
  3. NYTOL [Suspect]
     Route: 065

REACTIONS (1)
  - PERSONALITY CHANGE [None]
